FAERS Safety Report 9357639 (Version 1)
Quarter: 2013Q2

REPORT INFORMATION
  Report Type: Spontaneous
  Country: IN (occurrence: IN)
  Receive Date: 20130620
  Receipt Date: 20130620
  Transmission Date: 20140414
  Serious: Yes (Death, Hospitalization)
  Sender: FDA-Public Use
  Company Number: IN-SANOFI-AVENTIS-2013SA055073

PATIENT
  Age: 73 Year
  Sex: Male

DRUGS (1)
  1. JEVTANA [Suspect]
     Indication: HORMONE-REFRACTORY PROSTATE CANCER
     Route: 042
     Dates: start: 20130425

REACTIONS (3)
  - Haemorrhage [Fatal]
  - Diarrhoea [Fatal]
  - Asthenia [Fatal]
